FAERS Safety Report 24795852 (Version 1)
Quarter: 2025Q1

REPORT INFORMATION
  Report Type: Other
  Country: GR (occurrence: GR)
  Receive Date: 20250101
  Receipt Date: 20250101
  Transmission Date: 20250409
  Serious: Yes (Hospitalization, Other)
  Sender: ANI
  Company Number: GR-ANIPHARMA-015256

PATIENT
  Age: 42 Year
  Sex: Male

DRUGS (1)
  1. CIMETIDINE HYDROCHLORIDE [Suspect]
     Active Substance: CIMETIDINE HYDROCHLORIDE
     Indication: Product used for unknown indication

REACTIONS (2)
  - Hypovolaemic shock [Unknown]
  - Sinus bradycardia [Recovered/Resolved]
